FAERS Safety Report 23076285 (Version 1)
Quarter: 2023Q4

REPORT INFORMATION
  Report Type: Spontaneous
  Country: US (occurrence: None)
  Receive Date: 20231017
  Receipt Date: 20231017
  Transmission Date: 20240110
  Serious: Yes (Other)
  Sender: FDA-Public Use
  Company Number: None

PATIENT
  Age: 30 Year
  Sex: Male
  Weight: 67.5 kg

DRUGS (1)
  1. FINASTERIDE [Suspect]
     Active Substance: FINASTERIDE
     Indication: Androgenetic alopecia
     Dosage: OTHER QUANTITY : 1 TABLET(S);?FREQUENCY : DAILY;?
     Route: 048

REACTIONS (13)
  - Erectile dysfunction [None]
  - Genital discolouration [None]
  - Testicular atrophy [None]
  - Therapy cessation [None]
  - Varicocele [None]
  - Penile vascular disorder [None]
  - Libido decreased [None]
  - Penis disorder [None]
  - Fibrosis [None]
  - Ejaculation disorder [None]
  - Testicular pain [None]
  - Nipple disorder [None]
  - Dry skin [None]

NARRATIVE: CASE EVENT DATE: 20230808
